FAERS Safety Report 12251329 (Version 3)
Quarter: 2017Q2

REPORT INFORMATION
  Report Type: Spontaneous
  Country: US (occurrence: US)
  Receive Date: 20160410
  Receipt Date: 20170407
  Transmission Date: 20170830
  Serious: Yes (Other)
  Sender: FDA-Public Use
  Company Number: US-JNJFOC-20160319549

PATIENT
  Sex: Male

DRUGS (17)
  1. RISPERDAL [Suspect]
     Active Substance: RISPERIDONE
     Indication: SCHIZOPHRENIA
     Dosage: 0.5 MG, 1 MG, 2 MG
     Route: 048
     Dates: start: 201005, end: 201012
  2. RISPERDAL [Suspect]
     Active Substance: RISPERIDONE
     Indication: PRODUCT USED FOR UNKNOWN INDICATION
     Route: 048
  3. RISPERDAL [Suspect]
     Active Substance: RISPERIDONE
     Indication: SOCIAL PROBLEM
     Route: 048
     Dates: start: 200606, end: 200607
  4. RISPERDAL [Suspect]
     Active Substance: RISPERIDONE
     Indication: SOCIAL PROBLEM
     Dosage: 0.5 MG, 1 MG, 2 MG
     Route: 048
     Dates: start: 20060627, end: 20100517
  5. RISPERDAL [Suspect]
     Active Substance: RISPERIDONE
     Indication: SOCIAL PROBLEM
     Route: 048
     Dates: start: 200608
  6. RISPERDAL [Suspect]
     Active Substance: RISPERIDONE
     Indication: BIPOLAR DISORDER
     Route: 048
     Dates: start: 200608
  7. RISPERDAL [Suspect]
     Active Substance: RISPERIDONE
     Indication: SOCIAL PROBLEM
     Dosage: 0.5 MG, 1 MG, 2 MG
     Route: 048
     Dates: start: 201005, end: 201012
  8. RISPERDAL [Suspect]
     Active Substance: RISPERIDONE
     Indication: BIPOLAR DISORDER
     Dosage: 0.5 MG, 1 MG, 2 MG
     Route: 048
     Dates: start: 201005, end: 201012
  9. RISPERDAL [Suspect]
     Active Substance: RISPERIDONE
     Indication: SOCIAL PROBLEM
     Route: 048
     Dates: end: 2012
  10. RISPERDAL [Suspect]
     Active Substance: RISPERIDONE
     Indication: BIPOLAR DISORDER
     Route: 048
     Dates: start: 200606, end: 200607
  11. RISPERIDONE. [Suspect]
     Active Substance: RISPERIDONE
     Indication: PRODUCT USED FOR UNKNOWN INDICATION
     Route: 048
  12. RISPERDAL [Suspect]
     Active Substance: RISPERIDONE
     Indication: BIPOLAR DISORDER
     Dosage: 0.5 MG, 1 MG, 2 MG
     Route: 048
     Dates: start: 20060627, end: 20100517
  13. RISPERDAL [Suspect]
     Active Substance: RISPERIDONE
     Indication: SCHIZOPHRENIA
     Dosage: 0.5 MG, 1 MG, 2 MG
     Route: 048
     Dates: start: 20060627, end: 20100517
  14. RISPERDAL [Suspect]
     Active Substance: RISPERIDONE
     Indication: SCHIZOPHRENIA
     Route: 048
     Dates: start: 200608
  15. RISPERDAL [Suspect]
     Active Substance: RISPERIDONE
     Indication: BIPOLAR DISORDER
     Route: 048
     Dates: end: 2012
  16. RISPERDAL [Suspect]
     Active Substance: RISPERIDONE
     Indication: SCHIZOPHRENIA
     Route: 048
     Dates: end: 2012
  17. RISPERDAL [Suspect]
     Active Substance: RISPERIDONE
     Indication: SCHIZOPHRENIA
     Route: 048
     Dates: start: 200606, end: 200607

REACTIONS (4)
  - Gynaecomastia [Unknown]
  - Extrapyramidal disorder [Unknown]
  - Mood swings [Unknown]
  - Abnormal weight gain [Unknown]

NARRATIVE: CASE EVENT DATE: 2007
